FAERS Safety Report 10457865 (Version 3)
Quarter: 2014Q4

REPORT INFORMATION
  Report Type: Spontaneous
  Country: JP (occurrence: JP)
  Receive Date: 20140916
  Receipt Date: 20141110
  Transmission Date: 20150528
  Serious: Yes (Life-Threatening, Other)
  Sender: FDA-Public Use
  Company Number: JP-GLAXOSMITHKLINE-B1032780A

PATIENT

DRUGS (11)
  1. MINOCYCLINE HYDROCHLORIDE. [Suspect]
     Active Substance: MINOCYCLINE HYDROCHLORIDE
     Indication: SEPSIS
     Dosage: 100 MG, BID
     Route: 042
     Dates: start: 20120508, end: 20120510
  2. CEFTRIAXONE SODIUM. [Suspect]
     Active Substance: CEFTRIAXONE SODIUM
     Route: 042
  3. MIDAZOLAM [Suspect]
     Active Substance: MIDAZOLAM\MIDAZOLAM HYDROCHLORIDE
     Route: 042
  4. ACYCLOVIR. [Suspect]
     Active Substance: ACYCLOVIR
     Indication: MENINGOENCEPHALITIS HERPETIC
     Dosage: 500 MG, BID
     Route: 041
     Dates: start: 20120508, end: 20120511
  5. THIOPENTAL SODIUM. [Suspect]
     Active Substance: THIOPENTAL SODIUM
     Route: 042
  6. NOBELBAR [Suspect]
     Active Substance: PHENOBARBITAL SODIUM
     Indication: STATUS EPILEPTICUS
     Dosage: 900 MG, QD
     Route: 042
     Dates: start: 20120511, end: 20120516
  7. LEVETIRACETAM. [Suspect]
     Active Substance: LEVETIRACETAM
     Route: 065
  8. PROPOFOL. [Suspect]
     Active Substance: PROPOFOL
     Route: 042
  9. FOSPHENYTOIN [Suspect]
     Active Substance: FOSPHENYTOIN\FOSPHENYTOIN SODIUM
     Indication: STATUS EPILEPTICUS
     Dosage: 900 MG, QD
     Route: 042
     Dates: start: 20120511, end: 20120528
  10. DEPAKENE [Suspect]
     Active Substance: VALPROIC ACID
     Indication: STATUS EPILEPTICUS
     Dosage: 200 MG, BID
     Route: 048
     Dates: start: 20120516, end: 20120528
  11. VANCOMYCIN [Suspect]
     Active Substance: VANCOMYCIN
     Indication: SEPSIS
     Dosage: 1 G, BID
     Route: 042
     Dates: start: 20120508, end: 20120510

REACTIONS (10)
  - Drug reaction with eosinophilia and systemic symptoms [Recovered/Resolved]
  - Drug eruption [Recovered/Resolved]
  - Serum ferritin increased [Recovered/Resolved]
  - Bicytopenia [Recovered/Resolved]
  - Pyrexia [Unknown]
  - Histiocytosis haematophagic [Recovered/Resolved]
  - Aspiration bone marrow abnormal [Recovered/Resolved]
  - Hypertriglyceridaemia [Recovered/Resolved]
  - Multi-organ failure [Recovering/Resolving]
  - Interleukin-2 receptor increased [Recovered/Resolved]

NARRATIVE: CASE EVENT DATE: 20120523
